FAERS Safety Report 4457017-0 (Version None)
Quarter: 2004Q3

REPORT INFORMATION
  Report Type: 
  Country: None (occurrence: None)
  Receive Date: 20040923
  Receipt Date: 20040914
  Transmission Date: 20050211
  Serious: Yes (Hospitalization)
  Sender: FDA-Public Use
  Company Number: FR-GLAXOSMITHKLINE-B0345332A

PATIENT
  Age: 78 Year
  Sex: Female

DRUGS (9)
  1. AUGMENTIN '125' [Suspect]
     Dosage: 3G PER DAY
     Route: 042
     Dates: start: 20040716, end: 20040725
  2. FOLIC ACID [Suspect]
     Dosage: 10MG PER DAY
     Route: 048
     Dates: start: 20040710
  3. VITAMINE B1-B6 ROCHE [Suspect]
     Dosage: 4UNIT PER DAY
     Route: 048
     Dates: start: 20040710
  4. EUPANTOL [Suspect]
     Dosage: 40MG PER DAY
     Route: 048
     Dates: start: 20040714
  5. LOVENOX [Concomitant]
     Route: 058
     Dates: start: 20040808
  6. EQUANIL [Concomitant]
     Dosage: 1UNIT TWICE PER DAY
     Route: 048
     Dates: start: 20040810, end: 20040819
  7. TERCIAN [Concomitant]
     Dosage: 1UNIT TWICE PER DAY
     Dates: start: 20040810
  8. DOLIPRANE [Concomitant]
     Dosage: 1G THREE TIMES PER DAY
     Dates: start: 20040810
  9. LASIX [Concomitant]
     Dosage: 40MG PER DAY
     Route: 048
     Dates: start: 20040817

REACTIONS (3)
  - BLOOD ALKALINE PHOSPHATASE INCREASED [None]
  - GAMMA-GLUTAMYLTRANSFERASE INCREASED [None]
  - HEPATITIS CHOLESTATIC [None]
